FAERS Safety Report 11428048 (Version 2)
Quarter: 2015Q3

REPORT INFORMATION
  Report Type: Spontaneous
  Country: GB (occurrence: GB)
  Receive Date: 20150828
  Receipt Date: 20150828
  Transmission Date: 20151125
  Serious: Yes (Other)
  Sender: FDA-Public Use
  Company Number: GB-WATSON-2015-17974

PATIENT
  Age: 34 Year
  Sex: Female
  Weight: 72 kg

DRUGS (7)
  1. MIDAZOLAM [Suspect]
     Active Substance: MIDAZOLAM\MIDAZOLAM HYDROCHLORIDE
     Indication: SEDATIVE THERAPY
     Dosage: 1 MG, UNK
     Route: 042
     Dates: start: 20150622, end: 20150622
  2. FENTANYL (UNKNOWN) [Suspect]
     Active Substance: FENTANYL
     Indication: SEDATIVE THERAPY
     Dosage: 50 ?G, UNK
     Route: 042
     Dates: start: 20150622, end: 20150622
  3. OVITRELLE [Concomitant]
     Active Substance: CHORIOGONADOTROPIN ALFA
     Indication: PRODUCT USED FOR UNKNOWN INDICATION
     Dosage: UNK
     Route: 065
  4. GONAL-F [Concomitant]
     Active Substance: FOLLITROPIN
     Indication: PRODUCT USED FOR UNKNOWN INDICATION
     Dosage: UNK
     Route: 065
  5. LIDOCAINE (UNKNOWN) [Suspect]
     Active Substance: LIDOCAINE
     Indication: PRODUCT USED FOR UNKNOWN INDICATION
     Dosage: UNK
     Route: 065
  6. TEMAZEPAM (UNKNOWN) [Suspect]
     Active Substance: TEMAZEPAM
     Indication: SEDATIVE THERAPY
     Dosage: 10 MG, UNK
     Route: 048
     Dates: start: 20150622, end: 20150622
  7. SUPRECUR [Concomitant]
     Active Substance: BUSERELIN
     Indication: PRODUCT USED FOR UNKNOWN INDICATION
     Dosage: UNK
     Route: 065

REACTIONS (1)
  - Loss of consciousness [Recovered/Resolved]

NARRATIVE: CASE EVENT DATE: 20150622
